FAERS Safety Report 6955958-3 (Version None)
Quarter: 2010Q3

REPORT INFORMATION
  Report Type: 
  Country: None (occurrence: None)
  Receive Date: 20100830
  Receipt Date: 20100825
  Transmission Date: 20110219
  Serious: Yes (Other)
  Sender: FDA-Public Use
  Company Number: CH-MERCK-1008USA03486

PATIENT
  Age: 19 Year
  Sex: Female

DRUGS (3)
  1. NOROXIN [Suspect]
     Indication: CYSTITIS
     Route: 048
     Dates: start: 20091002, end: 20091013
  2. FLAGYL [Suspect]
     Indication: VAGINAL INFECTION
     Route: 065
     Dates: start: 20091009, end: 20091013
  3. ZITHROMAX [Suspect]
     Indication: VAGINAL INFECTION
     Route: 065
     Dates: start: 20091013, end: 20091016

REACTIONS (2)
  - ABORTION INDUCED [None]
  - DRUG EXPOSURE DURING PREGNANCY [None]
